FAERS Safety Report 9274916 (Version 1)
Quarter: 2013Q1

REPORT INFORMATION
  Report Type: Spontaneous
  Country: FR (occurrence: None)
  Receive Date: 20130314
  Receipt Date: 20130314
  Transmission Date: 20140127
  Serious: Yes (Hospitalization)
  Sender: FDA-Public Use
  Company Number: EUS-2013-00086

PATIENT
  Age: 51 Year
  Sex: Male

DRUGS (1)
  1. ERWINASE (ASPARAGINASE) [Suspect]
     Indication: T-CELL LYMPHOMA
     Route: 042
     Dates: start: 201301, end: 20130213

REACTIONS (9)
  - Hypoxia [None]
  - Rash [None]
  - Confusional state [None]
  - Dyspnoea [None]
  - Lung disorder [None]
  - Pruritus [None]
  - Erythema [None]
  - Neurological symptom [None]
  - Altered state of consciousness [None]
